FAERS Safety Report 6433523-4 (Version None)
Quarter: 2009Q4

REPORT INFORMATION
  Report Type: 
  Country: None (occurrence: None)
  Receive Date: 20091110
  Receipt Date: 20091030
  Transmission Date: 20100525
  Serious: Yes (Other)
  Sender: FDA-Public Use
  Company Number: US-BIOGENIDEC-2009BI035395

PATIENT
  Age: 43 Year
  Sex: Male

DRUGS (1)
  1. TYSABRI [Suspect]
     Indication: MULTIPLE SCLEROSIS
     Route: 042
     Dates: start: 20080219

REACTIONS (7)
  - CONVULSION [None]
  - DYSPHEMIA [None]
  - FOOD ALLERGY [None]
  - MENTAL IMPAIRMENT [None]
  - PAIN [None]
  - SPEECH DISORDER [None]
  - VERTIGO [None]
